FAERS Safety Report 7668558-7 (Version None)
Quarter: 2011Q3

REPORT INFORMATION
  Report Type: 
  Country: None (occurrence: None)
  Receive Date: 20110808
  Receipt Date: 20110728
  Transmission Date: 20111222
  Serious: Yes (Hospitalization, Other)
  Sender: FDA-Public Use
  Company Number: US-AMGEN-USASP2011034815

PATIENT
  Age: 80 Year
  Sex: Female

DRUGS (2)
  1. ENBREL [Suspect]
     Indication: RHEUMATOID ARTHRITIS
     Dosage: 50 MG, QWK
     Route: 058
     Dates: start: 20110117, end: 20110620
  2. METHOTREXATE [Concomitant]
     Dosage: UNK
     Dates: start: 20100101

REACTIONS (4)
  - PNEUMONIA [None]
  - ATRIAL FIBRILLATION [None]
  - ASTHENIA [None]
  - CHEST PAIN [None]
